FAERS Safety Report 17736254 (Version 4)
Quarter: 2020Q2

REPORT INFORMATION
  Report Type: Report from Study
  Country: None (occurrence: ES)
  Receive Date: 20200501
  Receipt Date: 20200626
  Transmission Date: 20200714
  Serious: Yes (Hospitalization)
  Sender: FDA-Public Use
  Company Number: ES-ABBVIE-19K-144-3147611-00

PATIENT
  Age: 63 Year
  Sex: Male
  Weight: 71.8 kg

DRUGS (5)
  1. PARACETAMOL [Concomitant]
     Active Substance: ACETAMINOPHEN
     Indication: PRODUCT USED FOR UNKNOWN INDICATION
     Dates: start: 20190225
  2. IBRUTINIB [Suspect]
     Active Substance: IBRUTINIB
     Indication: MARGINAL ZONE LYMPHOMA
     Route: 048
     Dates: start: 20190218, end: 20190503
  3. INCB050465 [Concomitant]
     Active Substance: PARSACLISIB HYDROCHLORIDE
     Route: 048
     Dates: start: 20190415, end: 20190422
  4. SEPTRIN [Concomitant]
     Active Substance: SULFAMETHOXAZOLE\TRIMETHOPRIM
     Indication: PRODUCT USED FOR UNKNOWN INDICATION
     Dates: start: 20190215
  5. INCB050465 [Concomitant]
     Active Substance: PARSACLISIB HYDROCHLORIDE
     Indication: MARGINAL ZONE LYMPHOMA
     Route: 048
     Dates: start: 20190218, end: 20190414

REACTIONS (4)
  - Atrial fibrillation [Recovered/Resolved]
  - Alanine aminotransferase increased [Recovered/Resolved]
  - Dermatitis exfoliative [Recovered/Resolved]
  - Aspartate aminotransferase increased [Recovered/Resolved]

NARRATIVE: CASE EVENT DATE: 20190503
